FAERS Safety Report 8304348-X (Version None)
Quarter: 2012Q2

REPORT INFORMATION
  Report Type: 
  Country: None (occurrence: None)
  Receive Date: 20120423
  Receipt Date: 20120416
  Transmission Date: 20120825
  Serious: Yes (Other)
  Sender: FDA-Public Use
  Company Number: CH-PFIZER INC-2012054488

PATIENT
  Age: 76 Year
  Sex: Female
  Weight: 57 kg

DRUGS (8)
  1. NALOXONE [Concomitant]
     Dosage: 10 MG / 20 MG, 3X/DAY
     Route: 048
     Dates: start: 20120110
  2. LYRICA [Suspect]
     Dosage: UNK
     Route: 048
     Dates: end: 20120220
  3. LYRICA [Suspect]
     Dosage: 125 MG, UNK
     Route: 048
  4. PALEXIA [Concomitant]
     Dosage: 50 MG, 1X/DAY (1-0-0)
     Route: 048
     Dates: start: 20120110
  5. LYRICA [Suspect]
     Indication: POLYNEUROPATHY
     Dosage: 25 MG, 1-2 X DAILY
     Route: 048
     Dates: start: 20111202
  6. LYRICA [Suspect]
     Dosage: 150 MG, UNK
     Route: 048
  7. CONCERTA [Concomitant]
     Dosage: 36 MG, 1X/DAY (IN THE MORNING)
     Route: 048
     Dates: start: 20110101, end: 20120401
  8. METHADONE [Concomitant]
     Dosage: 5 MG, 2.5X/DAY (1-0.5-1)
     Route: 048
     Dates: start: 20120101

REACTIONS (12)
  - DRUG WITHDRAWAL SYNDROME [None]
  - AFFECT LABILITY [None]
  - DIZZINESS [None]
  - SOMNOLENCE [None]
  - SLEEP DISORDER [None]
  - HEADACHE [None]
  - DEPRESSION [None]
  - HYPERTENSION [None]
  - DRUG INEFFECTIVE [None]
  - TINNITUS [None]
  - HYPERHIDROSIS [None]
  - SEDATION [None]
